FAERS Safety Report 5551453-7 (Version None)
Quarter: 2007Q4

REPORT INFORMATION
  Report Type: 
  Country: None (occurrence: None)
  Receive Date: 20071212
  Receipt Date: 20071205
  Transmission Date: 20080405
  Serious: Yes (Other)
  Sender: FDA-Public Use
  Company Number: US-GENENTECH-252121

PATIENT
  Age: 62 Year
  Sex: Male
  Weight: 70.7 kg

DRUGS (11)
  1. BEVACIZUMAB [Suspect]
     Indication: GLIOBLASTOMA
     Dosage: 10 MG/KG, DAYS 1+15
     Route: 042
     Dates: start: 20071112
  2. TEMOZOLOMIDE [Suspect]
     Indication: GLIOBLASTOMA
     Dosage: 75 MG/M2, QD
     Route: 048
     Dates: start: 20071112
  3. ZOLOFT [Concomitant]
     Indication: DEPRESSION
  4. FLOMAX [Concomitant]
     Indication: PROSTATIC DISORDER
     Dosage: 0.4 MG, PRN
  5. MELATONIN [Concomitant]
     Indication: DRUG USE FOR UNKNOWN INDICATION
  6. DEXAMETHASONE TAB [Concomitant]
     Indication: OEDEMA
     Dosage: 8 MG, BID
  7. ONDANSETRON [Concomitant]
     Indication: NAUSEA
     Dosage: 8 MG, PRN
  8. 21ST CENTURY OMEGA-3 FISH OIL [Concomitant]
     Indication: DRUG USE FOR UNKNOWN INDICATION
     Dosage: 1000 MG, BID
  9. VITAMIN CAP [Concomitant]
     Indication: DRUG USE FOR UNKNOWN INDICATION
  10. NEXIUM [Concomitant]
     Indication: GASTROOESOPHAGEAL REFLUX DISEASE
     Dosage: 40 MG, UNK
  11. AMBIEN [Concomitant]
     Indication: INSOMNIA
     Dosage: UNK, QHS

REACTIONS (1)
  - HERPES ZOSTER [None]
